FAERS Safety Report 4486896-6 (Version None)
Quarter: 2004Q3

REPORT INFORMATION
  Report Type: 
  Country: None (occurrence: None)
  Receive Date: 20040921
  Receipt Date: 20031002
  Transmission Date: 20050211
  Serious: Yes (Hospitalization)
  Sender: FDA-Public Use
  Company Number: 163-20785-03100153

PATIENT
  Age: 58 Year
  Sex: Male

DRUGS (6)
  1. THALOMID [Suspect]
     Indication: MULTIPLE MYELOMA
     Dosage: 400 MG, DAILY, ORAL
     Route: 048
     Dates: start: 20030722, end: 20030819
  2. ADRIAMYCIN PFS [Suspect]
     Indication: MULTIPLE MYELOMA
     Dosage: 19 MG, INTRAVENOUS
     Route: 042
     Dates: start: 20030722, end: 20030725
  3. DEXAMETHASONE [Suspect]
     Indication: MULTIPLE MYELOMA
     Dosage: 40 MG, ORAL
     Route: 048
     Dates: start: 20030722, end: 20030725
  4. DEXAMETHASONE [Suspect]
     Indication: MULTIPLE MYELOMA
     Dosage: 40 MG, ORAL
     Route: 048
     Dates: start: 20030730, end: 20030802
  5. DEXAMETHASONE [Suspect]
     Indication: MULTIPLE MYELOMA
     Dosage: 40 MG, ORAL
     Route: 048
     Dates: start: 20030807, end: 20030810
  6. VINCRISTINE [Suspect]
     Indication: MULTIPLE MYELOMA
     Dates: start: 20030722

REACTIONS (11)
  - ABDOMINAL PAIN UPPER [None]
  - BACK PAIN [None]
  - BACTERAEMIA [None]
  - COUGH [None]
  - DYSPNOEA [None]
  - FEBRILE NEUTROPENIA [None]
  - HYPERHIDROSIS [None]
  - NAUSEA [None]
  - PNEUMONIA [None]
  - TACHYCARDIA [None]
  - VOMITING [None]
